FAERS Safety Report 4897227-1 (Version None)
Quarter: 2006Q1

REPORT INFORMATION
  Report Type: 
  Country: None (occurrence: None)
  Receive Date: 20060127
  Receipt Date: 20060111
  Transmission Date: 20060701
  Serious: Yes (Hospitalization)
  Sender: FDA-Public Use
  Company Number: DSA_2274_2005

PATIENT
  Age: 19 Year
  Sex: Female
  Weight: 60.3 kg

DRUGS (3)
  1. VANIQA [Suspect]
     Dosage: DF TID TP
     Dates: start: 20050301, end: 20051201
  2. VANIQA [Suspect]
     Dosage: DF TID TP
  3. DIANETTE [Concomitant]

REACTIONS (6)
  - ERYTHEMA [None]
  - HEART RATE INCREASED [None]
  - INFLUENZA LIKE ILLNESS [None]
  - MENINGITIS [None]
  - RASH ERYTHEMATOUS [None]
  - RESPIRATORY TRACT INFECTION [None]
